FAERS Safety Report 16387990 (Version 2)
Quarter: 2019Q3

REPORT INFORMATION
  Report Type: Spontaneous
  Country: BE (occurrence: BE)
  Receive Date: 20190604
  Receipt Date: 20190717
  Transmission Date: 20191004
  Serious: Yes (Other)
  Sender: FDA-Public Use
  Company Number: BE-AUROBINDO-AUR-APL-2019-030574

PATIENT

DRUGS (41)
  1. MOXIFLOXACIN. [Suspect]
     Active Substance: MOXIFLOXACIN
     Indication: CYSTIC FIBROSIS
  2. TIGECYCLINE. [Suspect]
     Active Substance: TIGECYCLINE
     Indication: RESPIRATORY FAILURE
  3. IMIPENEM [Suspect]
     Active Substance: IMIPENEM
     Indication: BRONCHIECTASIS
  4. LINEZOLID. [Suspect]
     Active Substance: LINEZOLID
     Indication: RESPIRATORY FAILURE
  5. AMIKACIN. [Suspect]
     Active Substance: AMIKACIN
     Indication: LUNG INFECTION
  6. BEDAQUILINE [Suspect]
     Active Substance: BEDAQUILINE
     Indication: LUNG INFECTION
     Dosage: UNK
     Route: 065
  7. MOXIFLOXACIN. [Suspect]
     Active Substance: MOXIFLOXACIN
     Indication: RESPIRATORY FAILURE
  8. IMIPENEM [Suspect]
     Active Substance: IMIPENEM
     Indication: CYSTIC FIBROSIS
     Dosage: UNK
     Route: 042
  9. IMIPENEM [Suspect]
     Active Substance: IMIPENEM
     Indication: LUNG INFECTION
  10. CLOFAZIMINE [Suspect]
     Active Substance: CLOFAZIMINE
     Indication: MYCOBACTERIUM ABSCESSUS INFECTION
     Dosage: UNK
     Route: 048
  11. CLOFAZIMINE [Suspect]
     Active Substance: CLOFAZIMINE
     Indication: BRONCHIECTASIS
  12. CLOFAZIMINE [Suspect]
     Active Substance: CLOFAZIMINE
     Indication: LUNG INFECTION
  13. LINEZOLID. [Suspect]
     Active Substance: LINEZOLID
     Indication: MYCOBACTERIUM ABSCESSUS INFECTION
  14. AMIKACIN. [Suspect]
     Active Substance: AMIKACIN
     Indication: MYCOBACTERIUM ABSCESSUS INFECTION
     Dosage: UNK
     Route: 042
  15. AMIKACIN. [Suspect]
     Active Substance: AMIKACIN
     Indication: RESPIRATORY FAILURE
  16. TIGECYCLINE. [Suspect]
     Active Substance: TIGECYCLINE
     Indication: CYSTIC FIBROSIS
  17. CLARITHROMYCIN. [Suspect]
     Active Substance: CLARITHROMYCIN
     Indication: LUNG INFECTION
  18. LINEZOLID. [Suspect]
     Active Substance: LINEZOLID
     Indication: LUNG INFECTION
  19. MINOCYCLINE [Suspect]
     Active Substance: MINOCYCLINE HYDROCHLORIDE
     Indication: LUNG INFECTION
  20. MOXIFLOXACIN. [Suspect]
     Active Substance: MOXIFLOXACIN
     Indication: MYCOBACTERIAL INFECTION
     Dosage: UNK
     Route: 048
  21. AZITHROMYCIN ANHYDROUS. [Suspect]
     Active Substance: AZITHROMYCIN ANHYDROUS
     Indication: LUNG INFECTION
  22. TIGECYCLINE. [Suspect]
     Active Substance: TIGECYCLINE
     Indication: MYCOBACTERIUM ABSCESSUS INFECTION
     Dosage: UNK
     Route: 042
  23. IMIPENEM [Suspect]
     Active Substance: IMIPENEM
     Indication: MYCOBACTERIUM ABSCESSUS INFECTION
  24. CLOFAZIMINE [Suspect]
     Active Substance: CLOFAZIMINE
     Indication: CYSTIC FIBROSIS
  25. TACROLIMUS. [Suspect]
     Active Substance: TACROLIMUS
     Indication: IMMUNOSUPPRESSANT DRUG THERAPY
     Dosage: UNK
     Route: 065
  26. LINEZOLID. [Suspect]
     Active Substance: LINEZOLID
     Indication: CYSTIC FIBROSIS
  27. AZITHROMYCIN ANHYDROUS. [Suspect]
     Active Substance: AZITHROMYCIN ANHYDROUS
     Indication: MYCOBACTERIUM ABSCESSUS INFECTION
     Dosage: UNK
     Route: 048
  28. IMIPENEM [Suspect]
     Active Substance: IMIPENEM
     Indication: RESPIRATORY FAILURE
  29. CLOFAZIMINE [Suspect]
     Active Substance: CLOFAZIMINE
     Indication: RESPIRATORY FAILURE
  30. CLARITHROMYCIN. [Suspect]
     Active Substance: CLARITHROMYCIN
     Indication: MYCOBACTERIUM ABSCESSUS INFECTION
     Dosage: UNK
     Route: 048
  31. CLARITHROMYCIN. [Suspect]
     Active Substance: CLARITHROMYCIN
     Indication: BRONCHIECTASIS
  32. MINOCYCLINE [Suspect]
     Active Substance: MINOCYCLINE HYDROCHLORIDE
     Indication: MYCOBACTERIUM ABSCESSUS INFECTION
     Dosage: UNK
     Route: 065
  33. MOXIFLOXACIN. [Suspect]
     Active Substance: MOXIFLOXACIN
     Indication: BRONCHIECTASIS
  34. TIGECYCLINE. [Suspect]
     Active Substance: TIGECYCLINE
     Indication: LUNG INFECTION
  35. AMIKACIN. [Suspect]
     Active Substance: AMIKACIN
     Indication: BRONCHIECTASIS
  36. MOXIFLOXACIN. [Suspect]
     Active Substance: MOXIFLOXACIN
     Indication: LUNG INFECTION
  37. TIGECYCLINE. [Suspect]
     Active Substance: TIGECYCLINE
     Indication: BRONCHIECTASIS
  38. CLARITHROMYCIN. [Suspect]
     Active Substance: CLARITHROMYCIN
     Indication: RESPIRATORY FAILURE
  39. CLARITHROMYCIN. [Suspect]
     Active Substance: CLARITHROMYCIN
     Indication: CYSTIC FIBROSIS
  40. LINEZOLID. [Suspect]
     Active Substance: LINEZOLID
     Indication: IMMUNOSUPPRESSANT DRUG THERAPY
     Dosage: UNK
     Route: 065
  41. LINEZOLID. [Suspect]
     Active Substance: LINEZOLID
     Indication: BRONCHIECTASIS

REACTIONS (4)
  - Vomiting [Unknown]
  - Hepatotoxicity [Unknown]
  - Nausea [Unknown]
  - Toxicity to various agents [Unknown]
